FAERS Safety Report 25249890 (Version 1)
Quarter: 2025Q2

REPORT INFORMATION
  Report Type: Spontaneous
  Country: PT (occurrence: PT)
  Receive Date: 20250429
  Receipt Date: 20250429
  Transmission Date: 20250716
  Serious: Yes (Life-Threatening, Hospitalization, Other)
  Sender: AUROBINDO
  Company Number: PT-JANSSEN-2021-PEL-000762

PATIENT
  Age: 63 Year
  Sex: Male

DRUGS (11)
  1. FENTANYL [Suspect]
     Active Substance: FENTANYL
     Indication: Induction of anaesthesia
     Route: 065
  2. FENTANYL [Suspect]
     Active Substance: FENTANYL
     Indication: Portal vein embolisation
  3. HYDROCORTISONE [Suspect]
     Active Substance: HYDROCORTISONE
     Indication: Induction of anaesthesia
     Route: 065
  4. CEFAZOLIN SODIUM [Suspect]
     Active Substance: CEFAZOLIN SODIUM
     Indication: Antibiotic prophylaxis
     Route: 065
  5. KETAMINE [Suspect]
     Active Substance: KETAMINE
     Indication: Induction of anaesthesia
     Route: 065
  6. KETAMINE [Suspect]
     Active Substance: KETAMINE
     Indication: Portal vein embolisation
  7. IODINE [Suspect]
     Active Substance: IODINE
     Indication: Portal vein embolisation
     Route: 065
  8. PROPOFOL [Suspect]
     Active Substance: PROPOFOL
     Indication: Induction of anaesthesia
     Route: 065
  9. PROPOFOL [Suspect]
     Active Substance: PROPOFOL
     Indication: Portal vein embolisation
  10. ALBUTEROL [Suspect]
     Active Substance: ALBUTEROL
     Indication: Induction of anaesthesia
     Route: 065
  11. EPINEPHRINE [Suspect]
     Active Substance: EPINEPHRINE
     Indication: Induction of anaesthesia
     Route: 065

REACTIONS (6)
  - Anaphylactic reaction [Recovered/Resolved]
  - Bronchospasm [Recovered/Resolved]
  - Psychomotor hyperactivity [Recovered/Resolved]
  - Respiratory distress [Recovered/Resolved]
  - Tachycardia [Recovered/Resolved]
  - Hypotension [Recovered/Resolved]
